FAERS Safety Report 7190233-6 (Version None)
Quarter: 2010Q4

REPORT INFORMATION
  Report Type: 
  Country: None (occurrence: None)
  Receive Date: 20101223
  Receipt Date: 20101209
  Transmission Date: 20110411
  Serious: Yes (Hospitalization)
  Sender: FDA-Public Use
  Company Number: PHHY2010US60148

PATIENT
  Sex: Female

DRUGS (4)
  1. EXJADE [Suspect]
     Dosage: 2000 MG, QD
     Route: 048
  2. EXJADE [Suspect]
     Dosage: 2 TABS DAILY
  3. EXJADE [Suspect]
     Dosage: 1500 MG
     Route: 048
     Dates: start: 20100924
  4. EXJADE [Suspect]
     Dosage: 1000 MG, QD
     Route: 048

REACTIONS (10)
  - ASTHENIA [None]
  - CHEST DISCOMFORT [None]
  - CHEST PAIN [None]
  - DIARRHOEA [None]
  - DIZZINESS [None]
  - DRUG INTOLERANCE [None]
  - HEADACHE [None]
  - HYPOKALAEMIA [None]
  - MALAISE [None]
  - SICKLE CELL ANAEMIA WITH CRISIS [None]
